FAERS Safety Report 6760827-8 (Version None)
Quarter: 2010Q2

REPORT INFORMATION
  Report Type: 
  Country: None (occurrence: None)
  Receive Date: 20100608
  Receipt Date: 20100525
  Transmission Date: 20101027
  Serious: Yes (Other)
  Sender: FDA-Public Use
  Company Number: PHHY2010JP30694

PATIENT
  Age: 86 Year
  Sex: Female

DRUGS (1)
  1. DIOVAN HCT [Suspect]
     Indication: HYPERTENSION
     Dosage: 1 DF
     Route: 048
     Dates: start: 20100506

REACTIONS (3)
  - DEMENTIA [None]
  - DYSKINESIA [None]
  - HYPOPHAGIA [None]
